FAERS Safety Report 9656927 (Version 1)
Quarter: 2013Q4

REPORT INFORMATION
  Report Type: Spontaneous
  Country: US (occurrence: US)
  Receive Date: 20131030
  Receipt Date: 20131030
  Transmission Date: 20140711
  Serious: No
  Sender: FDA-Public Use
  Company Number: US-B.I. PHARMACEUTICALS,INC./RIDGEFIELD-2013-BI-33560BP

PATIENT
  Age: 71 Year
  Sex: Female
  Weight: 99 kg

DRUGS (6)
  1. TRADJENTA [Suspect]
     Indication: TYPE 2 DIABETES MELLITUS
     Dosage: 5 MG
     Route: 048
     Dates: start: 20131017
  2. WARFARIN [Concomitant]
     Indication: ANTICOAGULANT THERAPY
     Dosage: 5 MG MONDAY, WEDNESDAY, FRIDAY; 2.5MG TUESDAY, THURSDAY, SATURDAY AND SUNDAY.
     Route: 048
  3. NEXIUM [Concomitant]
     Dosage: 40 MG
     Route: 048
  4. VICODIN [Concomitant]
     Indication: ARTHRITIS
     Dosage: STRENGTH: 5-500MG; DAILY DOSE: 20-2000MG
     Route: 048
  5. FERROUS SULFATE [Concomitant]
     Route: 048
  6. AMLODIPINE [Concomitant]
     Indication: HYPERTENSION
     Dosage: 10 MG
     Route: 048

REACTIONS (1)
  - Urine output decreased [Not Recovered/Not Resolved]
